FAERS Safety Report 9325743 (Version 1)
Quarter: 2013Q2

REPORT INFORMATION
  Report Type: Report from Study
  Country: GB (occurrence: GB)
  Receive Date: 20130604
  Receipt Date: 20130604
  Transmission Date: 20140414
  Serious: Yes (Hospitalization)
  Sender: FDA-Public Use
  Company Number: GB-ROCHE-1232044

PATIENT
  Age: 84 Year
  Sex: Male

DRUGS (8)
  1. RANIBIZUMAB [Suspect]
     Indication: PRODUCT USED FOR UNKNOWN INDICATION
     Route: 050
     Dates: start: 20110110
  2. RANIBIZUMAB [Suspect]
     Route: 050
     Dates: start: 20120914
  3. WARFARIN [Concomitant]
     Route: 065
     Dates: start: 20060126
  4. DIGOXIN [Concomitant]
     Route: 065
     Dates: start: 20060126
  5. LERCANIDIPINE [Concomitant]
     Route: 065
     Dates: start: 1983
  6. METFORMIN [Concomitant]
     Route: 065
     Dates: start: 20050210
  7. PERINDOPRIL [Concomitant]
     Route: 065
     Dates: start: 1983
  8. SIMVASTATIN [Concomitant]
     Route: 065
     Dates: start: 20051102

REACTIONS (3)
  - Cerebrovascular accident [Recovering/Resolving]
  - Prothrombin level increased [Unknown]
  - Prostatic specific antigen increased [Unknown]
